FAERS Safety Report 8846961 (Version 1)
Quarter: 2012Q4

REPORT INFORMATION
  Report Type: Spontaneous
  Country: US (occurrence: None)
  Receive Date: 20121017
  Receipt Date: 20121017
  Transmission Date: 20130627
  Serious: No
  Sender: FDA-Public Use
  Company Number: None

PATIENT
  Age: 29 Year
  Sex: Female
  Weight: 55.34 kg

DRUGS (4)
  1. CYMBALTA [Suspect]
     Indication: GENERALIZED ANXIETY DISORDER
     Route: 048
     Dates: start: 20110726, end: 20121012
  2. CYMBALTA [Suspect]
     Indication: DEPRESSION
     Route: 048
     Dates: start: 20110726, end: 20121012
  3. CYMBALTA [Suspect]
     Indication: GENERALIZED ANXIETY DISORDER
     Route: 048
  4. CYMBALTA [Suspect]
     Indication: DEPRESSION
     Route: 048

REACTIONS (16)
  - Drug withdrawal syndrome [None]
  - Paraesthesia [None]
  - Depressed mood [None]
  - Depressive symptom [None]
  - Activities of daily living impaired [None]
  - Mood altered [None]
  - Disturbance in attention [None]
  - Memory impairment [None]
  - Anxiety [None]
  - Dizziness [None]
  - Irritability [None]
  - Fatigue [None]
  - Dry mouth [None]
  - Abdominal discomfort [None]
  - Frequent bowel movements [None]
  - Nausea [None]
